FAERS Safety Report 25442078 (Version 1)
Quarter: 2025Q2

REPORT INFORMATION
  Report Type: Spontaneous
  Country: US (occurrence: US)
  Receive Date: 20250616
  Receipt Date: 20250616
  Transmission Date: 20250716
  Serious: Yes (Other)
  Sender: ALEXION PHARMACEUTICALS
  Company Number: US-ASTRAZENECA-202502USA008525US

PATIENT
  Age: 46 Year
  Weight: 84.4 kg

DRUGS (36)
  1. DURVALUMAB [Suspect]
     Active Substance: DURVALUMAB
     Indication: HER2 positive biliary tract cancer
     Route: 065
  2. DURVALUMAB [Suspect]
     Active Substance: DURVALUMAB
     Route: 065
  3. DURVALUMAB [Suspect]
     Active Substance: DURVALUMAB
     Route: 065
  4. DURVALUMAB [Suspect]
     Active Substance: DURVALUMAB
     Route: 065
  5. DURVALUMAB [Suspect]
     Active Substance: DURVALUMAB
     Route: 065
  6. DURVALUMAB [Suspect]
     Active Substance: DURVALUMAB
     Route: 065
  7. DURVALUMAB [Suspect]
     Active Substance: DURVALUMAB
     Route: 065
  8. DURVALUMAB [Suspect]
     Active Substance: DURVALUMAB
     Route: 065
  9. DURVALUMAB [Suspect]
     Active Substance: DURVALUMAB
     Route: 065
  10. GEMCITABINE [Suspect]
     Active Substance: GEMCITABINE
     Route: 065
  11. GEMCITABINE [Suspect]
     Active Substance: GEMCITABINE
     Route: 065
  12. GEMCITABINE [Suspect]
     Active Substance: GEMCITABINE
     Route: 065
  13. GEMCITABINE [Suspect]
     Active Substance: GEMCITABINE
     Route: 065
  14. GEMCITABINE [Suspect]
     Active Substance: GEMCITABINE
     Route: 065
  15. GEMCITABINE [Suspect]
     Active Substance: GEMCITABINE
     Route: 065
  16. GEMCITABINE [Suspect]
     Active Substance: GEMCITABINE
     Route: 065
  17. GEMCITABINE [Suspect]
     Active Substance: GEMCITABINE
     Route: 065
  18. GEMCITABINE [Suspect]
     Active Substance: GEMCITABINE
     Route: 065
  19. GEMCITABINE [Suspect]
     Active Substance: GEMCITABINE
     Route: 065
  20. GEMCITABINE [Suspect]
     Active Substance: GEMCITABINE
     Route: 065
  21. GEMCITABINE [Suspect]
     Active Substance: GEMCITABINE
     Route: 065
  22. CISPLATIN [Suspect]
     Active Substance: CISPLATIN
     Indication: HER2 positive biliary tract cancer
     Route: 065
  23. CISPLATIN [Suspect]
     Active Substance: CISPLATIN
     Route: 065
  24. CISPLATIN [Suspect]
     Active Substance: CISPLATIN
     Route: 065
  25. CISPLATIN [Suspect]
     Active Substance: CISPLATIN
     Route: 065
  26. CISPLATIN [Suspect]
     Active Substance: CISPLATIN
     Route: 065
  27. CISPLATIN [Suspect]
     Active Substance: CISPLATIN
     Route: 065
  28. CISPLATIN [Suspect]
     Active Substance: CISPLATIN
     Route: 065
  29. CISPLATIN [Suspect]
     Active Substance: CISPLATIN
     Route: 065
  30. CISPLATIN [Suspect]
     Active Substance: CISPLATIN
     Route: 065
  31. CISPLATIN [Suspect]
     Active Substance: CISPLATIN
     Route: 065
  32. CISPLATIN [Suspect]
     Active Substance: CISPLATIN
     Route: 065
  33. CISPLATIN [Suspect]
     Active Substance: CISPLATIN
     Route: 065
  34. CISPLATIN [Suspect]
     Active Substance: CISPLATIN
     Route: 065
  35. DEXAMETHASONE [Concomitant]
     Active Substance: DEXAMETHASONE
     Route: 065
  36. APREPITANT [Concomitant]
     Active Substance: APREPITANT
     Route: 065

REACTIONS (3)
  - Aspartate aminotransferase increased [Recovered/Resolved]
  - Alanine aminotransferase increased [Recovered/Resolved]
  - Diagnostic aspiration [Unknown]
